FAERS Safety Report 5317402-1 (Version None)
Quarter: 2007Q2

REPORT INFORMATION
  Report Type: 
  Country: None (occurrence: None)
  Receive Date: 20070504
  Receipt Date: 20070425
  Transmission Date: 20071010
  Serious: Yes (Hospitalization)
  Sender: FDA-Public Use
  Company Number: DE-ABBOTT-07P-062-0355963-00

PATIENT
  Age: 23 Year
  Sex: Female

DRUGS (7)
  1. VALPROATE SODIUM [Suspect]
     Indication: MYOCLONIC EPILEPSY
     Route: 048
     Dates: start: 20051206
  2. VALPROATE SODIUM [Interacting]
     Dosage: NOT REPORTED
  3. VALPROATE SODIUM [Interacting]
     Route: 065
  4. LAMOTRIGINE [Interacting]
     Indication: MYOCLONIC EPILEPSY
     Route: 065
     Dates: start: 20040101
  5. LAMOTRIGINE [Interacting]
     Route: 048
  6. LAMOTRIGINE [Interacting]
     Route: 048
     Dates: end: 20051213
  7. ETHOSUXIMIDE [Concomitant]
     Indication: MYOCLONIC EPILEPSY
     Dosage: NOT REPORTED

REACTIONS (7)
  - COORDINATION ABNORMAL [None]
  - DISTURBANCE IN ATTENTION [None]
  - DRUG INTERACTION [None]
  - FATIGUE [None]
  - NAUSEA [None]
  - VERTIGO [None]
  - VOMITING [None]
